FAERS Safety Report 8499947-9 (Version None)
Quarter: 2012Q3

REPORT INFORMATION
  Report Type: 
  Country: None (occurrence: None)
  Receive Date: 20120710
  Receipt Date: 20120702
  Transmission Date: 20120928
  Serious: Yes (Other)
  Sender: FDA-Public Use
  Company Number: US-BAYER-2012-046817

PATIENT
  Age: 29 Year
  Sex: Female

DRUGS (3)
  1. YASMIN [Suspect]
     Dosage: UNK
     Dates: start: 20040615, end: 20070701
  2. ALUPENT [Concomitant]
     Dosage: UNK
     Route: 045
     Dates: start: 20070709
  3. ZITHROMAX [Concomitant]
     Dosage: UNK
     Route: 048
     Dates: start: 20070709

REACTIONS (5)
  - CEREBROVASCULAR ACCIDENT [None]
  - PAIN [None]
  - INJURY [None]
  - ANHEDONIA [None]
  - EMOTIONAL DISTRESS [None]
